FAERS Safety Report 10936505 (Version 4)
Quarter: 2015Q2

REPORT INFORMATION
  Report Type: Spontaneous
  Country: GB (occurrence: GB)
  Receive Date: 20150321
  Receipt Date: 20150511
  Transmission Date: 20150821
  Serious: Yes (Other)
  Sender: FDA-Public Use
  Company Number: GB-MERCK-1503GBR008041

PATIENT
  Sex: Male

DRUGS (2)
  1. PROPECIA [Suspect]
     Active Substance: FINASTERIDE
     Dosage: ONE TABLET A DAY
     Route: 048
     Dates: start: 2013
  2. PROPECIA [Suspect]
     Active Substance: FINASTERIDE
     Dosage: 1 TABLET EVERY 3 OR 4 DAYS
     Route: 048
     Dates: start: 201502

REACTIONS (2)
  - Lymphoma [Unknown]
  - Inappropriate schedule of drug administration [Unknown]

NARRATIVE: CASE EVENT DATE: 201502
